FAERS Safety Report 13215273 (Version 1)
Quarter: 2017Q1

REPORT INFORMATION
  Report Type: Spontaneous
  Country: US (occurrence: US)
  Receive Date: 20170210
  Receipt Date: 20170210
  Transmission Date: 20170428
  Serious: No
  Sender: FDA-Public Use
  Company Number: US-ROCHE-1756647

PATIENT
  Sex: Female

DRUGS (1)
  1. XOLAIR [Suspect]
     Active Substance: OMALIZUMAB
     Indication: BRONCHOPULMONARY ASPERGILLOSIS ALLERGIC
     Route: 065

REACTIONS (3)
  - Blood immunoglobulin E increased [Unknown]
  - Off label use [Unknown]
  - Drug ineffective [Unknown]
